FAERS Safety Report 9490395 (Version 2)
Quarter: 2013Q4

REPORT INFORMATION
  Report Type: Spontaneous
  Country: PT (occurrence: PT)
  Receive Date: 20130830
  Receipt Date: 20131001
  Transmission Date: 20140711
  Serious: Yes (Death)
  Sender: FDA-Public Use
  Company Number: PT-BRISTOL-MYERS SQUIBB COMPANY-19223650

PATIENT
  Age: 57 Year
  Sex: Male

DRUGS (1)
  1. ENTECAVIR [Suspect]
     Indication: CHRONIC HEPATITIS B
     Dosage: 0.5 MG
     Route: 048
     Dates: start: 201302

REACTIONS (1)
  - Hepatocellular carcinoma [Fatal]
